FAERS Safety Report 6652814-5 (Version None)
Quarter: 2010Q1

REPORT INFORMATION
  Report Type: 
  Country: None (occurrence: None)
  Receive Date: 20100326
  Receipt Date: 20100318
  Transmission Date: 20100710
  Serious: Yes (Hospitalization)
  Sender: FDA-Public Use
  Company Number: FR-JNJCH-2010006867

PATIENT
  Age: 36 Year
  Sex: Female

DRUGS (2)
  1. ACTIFED [Suspect]
     Indication: DRUG USE FOR UNKNOWN INDICATION
     Dosage: TEXT:ONE TABLET ONCE
     Route: 048
     Dates: start: 20091217, end: 20091217
  2. ACTIFED [Suspect]
     Indication: DRUG USE FOR UNKNOWN INDICATION
     Dosage: TEXT:ONE TABLET ONCE
     Route: 048
     Dates: start: 20091217, end: 20091217

REACTIONS (1)
  - ANAPHYLACTIC REACTION [None]
